FAERS Safety Report 14734395 (Version 1)
Quarter: 2018Q2

REPORT INFORMATION
  Report Type: Report from Study
  Country: FR (occurrence: FR)
  Receive Date: 20180409
  Receipt Date: 20180409
  Transmission Date: 20180711
  Serious: Yes (Hospitalization)
  Sender: FDA-Public Use
  Company Number: FR-ROCHE-2099735

PATIENT
  Age: 72 Year
  Sex: Female
  Weight: 67 kg

DRUGS (5)
  1. CAPECITABINE. [Suspect]
     Active Substance: CAPECITABINE
     Indication: COLORECTAL CANCER METASTATIC
     Route: 065
     Dates: start: 20180110
  2. OXALIPLATINE [Suspect]
     Active Substance: OXALIPLATIN
     Indication: COLORECTAL CANCER METASTATIC
     Route: 065
     Dates: start: 20180315
  3. INDAPAMIDE. [Concomitant]
     Active Substance: INDAPAMIDE
     Indication: HYPERTENSION
     Route: 065
     Dates: start: 20161208
  4. BEVACIZUMAB. [Suspect]
     Active Substance: BEVACIZUMAB
     Indication: COLORECTAL CANCER METASTATIC
     Route: 065
     Dates: start: 20160915
  5. COZAAR [Concomitant]
     Active Substance: LOSARTAN POTASSIUM
     Indication: HYPERTENSION
     Route: 065
     Dates: start: 20161109

REACTIONS (2)
  - Hyperthermia [Recovering/Resolving]
  - General physical health deterioration [Recovering/Resolving]

NARRATIVE: CASE EVENT DATE: 20180317
